FAERS Safety Report 20215968 (Version 2)
Quarter: 2022Q1

REPORT INFORMATION
  Report Type: Spontaneous
  Country: IT (occurrence: IT)
  Receive Date: 20211222
  Receipt Date: 20220202
  Transmission Date: 20220423
  Serious: Yes (Hospitalization, Other)
  Sender: FDA-Public Use
  Company Number: IT-BoehringerIngelheim-2021-BI-145024

PATIENT
  Age: 71 Year
  Sex: Male

DRUGS (1)
  1. PRADAXA [Suspect]
     Active Substance: DABIGATRAN ETEXILATE MESYLATE
     Indication: Atrial flutter
     Dates: start: 201808, end: 20211221

REACTIONS (4)
  - Traumatic intracranial haemorrhage [Unknown]
  - Syncope [Unknown]
  - Fall [Unknown]
  - Multiple injuries [Unknown]

NARRATIVE: CASE EVENT DATE: 20211221
